FAERS Safety Report 18367955 (Version 3)
Quarter: 2021Q1

REPORT INFORMATION
  Report Type: Report from Study
  Country: FR (occurrence: FR)
  Receive Date: 20201009
  Receipt Date: 20210219
  Transmission Date: 20210419
  Serious: Yes (Hospitalization, Other)
  Sender: FDA-Public Use
  Company Number: FR-BRISTOL-MYERS SQUIBB COMPANY-BMS-2020-038443

PATIENT
  Age: 58 Year
  Sex: Male

DRUGS (1)
  1. NIVOLUMAB [Suspect]
     Active Substance: NIVOLUMAB
     Indication: LUNG NEOPLASM MALIGNANT
     Dosage: 200 MILLIGRAM, Q2WK
     Route: 042
     Dates: start: 20170120, end: 20170215

REACTIONS (5)
  - Prescribed underdose [Unknown]
  - Urinary tract infection [Unknown]
  - Renal failure [Recovering/Resolving]
  - Abdominal sepsis [Recovered/Resolved]
  - Gastrointestinal stoma necrosis [Recovering/Resolving]

NARRATIVE: CASE EVENT DATE: 20170214
